FAERS Safety Report 6656465-8 (Version None)
Quarter: 2010Q1

REPORT INFORMATION
  Report Type: 
  Country: None (occurrence: None)
  Receive Date: 20100329
  Receipt Date: 20100323
  Transmission Date: 20100710
  Serious: Yes (Other)
  Sender: FDA-Public Use
  Company Number: GB-PFIZER INC-2010036751

PATIENT
  Age: 67 Year
  Sex: Male
  Weight: 96 kg

DRUGS (3)
  1. HYDROCORTISONE [Suspect]
     Dosage: UNK
  2. CHLORPHENAMINE [Suspect]
     Indication: INFUSION
     Dosage: 10 MG, UNK
     Route: 042
     Dates: start: 20100225, end: 20100225
  3. REMICADE [Suspect]
     Indication: CROHN'S DISEASE
     Dosage: 480 MG, UNK
     Route: 042
     Dates: start: 20100225, end: 20100225

REACTIONS (4)
  - BLOOD PRESSURE DECREASED [None]
  - HEART RATE DECREASED [None]
  - MALAISE [None]
  - PALLOR [None]
